FAERS Safety Report 7394884-5 (Version None)
Quarter: 2011Q2

REPORT INFORMATION
  Report Type: 
  Country: None (occurrence: None)
  Receive Date: 20110405
  Receipt Date: 20110329
  Transmission Date: 20111010
  Serious: Yes (Death)
  Sender: FDA-Public Use
  Company Number: B0597384A

PATIENT
  Sex: Female

DRUGS (16)
  1. SPARTEINE [Concomitant]
     Route: 048
  2. LEVODOPA [Concomitant]
     Indication: PARKINSON'S DISEASE
     Route: 065
  3. FORTISIP [Concomitant]
     Route: 065
  4. DIGOXIN [Concomitant]
     Dosage: 62.5MCG PER DAY
     Route: 048
  5. CARBIMAZOLE [Concomitant]
     Dosage: 5MG PER DAY
     Route: 048
  6. LACTULOSE [Concomitant]
     Dosage: 10ML TWICE PER DAY
     Route: 048
  7. CARBIDOPA [Concomitant]
     Indication: PARKINSON'S DISEASE
     Route: 065
  8. FUROSEMIDE [Concomitant]
     Dosage: 20MG PER DAY
     Route: 048
  9. BISOPROLOL FUMARATE [Concomitant]
     Dosage: 5MG PER DAY
     Route: 065
  10. IRON [Concomitant]
     Route: 048
  11. ROPINIROLE HYDROCHLORIDE [Suspect]
     Indication: PARKINSON'S DISEASE
     Dosage: 9MG PER DAY
     Route: 048
  12. RISPERDAL [Suspect]
     Indication: PARKINSON'S DISEASE
     Route: 065
  13. SINEMET [Concomitant]
     Dosage: 250MCG PER DAY
     Route: 048
  14. ASPIRIN [Concomitant]
     Dosage: 75MG PER DAY
     Route: 048
  15. SINEMET CR [Concomitant]
     Route: 048
  16. AMOXIDAL [Concomitant]
     Dosage: 250MG THREE TIMES PER DAY

REACTIONS (3)
  - DEATH [None]
  - OFF LABEL USE [None]
  - MEDICATION ERROR [None]
